FAERS Safety Report 25652000 (Version 1)
Quarter: 2025Q3

REPORT INFORMATION
  Report Type: Report from Study
  Country: US (occurrence: US)
  Receive Date: 20250806
  Receipt Date: 20250806
  Transmission Date: 20251021
  Serious: No
  Sender: SUNOVION
  Company Number: US-SUMITOMO PHARMA SWITZERLAND GMBH-2025SPA003754

PATIENT
  Age: 68 Year
  Sex: Male

DRUGS (24)
  1. ORGOVYX [Suspect]
     Active Substance: RELUGOLIX
     Indication: Prostate cancer
     Dosage: 360 MG, SINGLE
     Route: 048
  2. ORGOVYX [Suspect]
     Active Substance: RELUGOLIX
     Dosage: 120 MG, QD
     Route: 048
  3. ACETAMINOPHEN [Concomitant]
     Active Substance: ACETAMINOPHEN
  4. ALPRAZOLAM [Concomitant]
     Active Substance: ALPRAZOLAM
  5. AMLODIPINE [Concomitant]
     Active Substance: AMLODIPINE BESYLATE
  6. VITAMIN B [Concomitant]
     Active Substance: VITAMIN B
  7. CEPHALEXIN [Concomitant]
     Active Substance: CEPHALEXIN
  8. CITALOPRAM [Concomitant]
     Active Substance: CITALOPRAM
  9. DULOXETINE [Concomitant]
     Active Substance: DULOXETINE
  10. FAMOTIDINE [Concomitant]
     Active Substance: FAMOTIDINE
  11. FLUTICASONE [Concomitant]
     Active Substance: FLUTICASONE
  12. KETOTIFEN [Concomitant]
     Active Substance: KETOTIFEN
  13. LISINOPRIL AND HYDROCHLOROTHIAZIDE [Concomitant]
     Active Substance: HYDROCHLOROTHIAZIDE\LISINOPRIL
  14. LORATADINE [Concomitant]
     Active Substance: LORATADINE
  15. MELOXICAM [Concomitant]
     Active Substance: MELOXICAM
  16. MONTELUKAST [Concomitant]
     Active Substance: MONTELUKAST
  17. OMEPRAZOLE [Concomitant]
     Active Substance: OMEPRAZOLE
  18. OXYBUTYNIN [Concomitant]
     Active Substance: OXYBUTYNIN
  19. QUETIAPINE [Concomitant]
     Active Substance: QUETIAPINE
  20. SULFAMETHOXAZOLE AND TRIMETHOPRIM [Concomitant]
     Active Substance: SULFAMETHOXAZOLE\TRIMETHOPRIM
  21. TAMSULOSIN [Concomitant]
     Active Substance: TAMSULOSIN
  22. TROSPIUM CHLORIDE [Concomitant]
     Active Substance: TROSPIUM CHLORIDE
  23. VITAMIN C [Concomitant]
     Active Substance: ASCORBIC ACID
  24. VITAMIN D3 [Concomitant]
     Active Substance: CHOLECALCIFEROL

REACTIONS (3)
  - Somnolence [Unknown]
  - Dizziness [Unknown]
  - Insomnia [Unknown]
